FAERS Safety Report 14624999 (Version 5)
Quarter: 2018Q4

REPORT INFORMATION
  Report Type: Spontaneous
  Country: US (occurrence: US)
  Receive Date: 20180312
  Receipt Date: 20181025
  Transmission Date: 20190204
  Serious: No
  Sender: FDA-Public Use
  Company Number: US-PFIZER INC-2018092904

PATIENT
  Age: 64 Year
  Sex: Female
  Weight: 68 kg

DRUGS (11)
  1. VITAMIN B12 [Concomitant]
     Active Substance: CYANOCOBALAMIN
     Indication: VITAMIN SUPPLEMENTATION
     Dosage: 2500 UG, DAILY (LITTLE CHERRY DISSOLVABLE PILL-DISSOLVES 1 PILL UNDER TONGUE DAILY)
     Route: 060
     Dates: start: 2016
  2. FLORAJEN [Concomitant]
     Indication: IMMUNE SYSTEM DISORDER
     Dosage: UNK, 1X/DAY (15 BILLION LIVE CULTURES PER CAPSULE TAKEN AT NIGHT BEFORE BEDTIME)
     Route: 048
     Dates: start: 2016
  3. SULFASALAZINE. [Suspect]
     Active Substance: SULFASALAZINE
     Indication: RHEUMATOID ARTHRITIS
     Dosage: 500 MG, 4X/DAY
     Route: 048
     Dates: start: 2017, end: 201802
  4. SULFASALAZINE. [Suspect]
     Active Substance: SULFASALAZINE
     Indication: INFLAMMATION
  5. VITAMINS D3 [Concomitant]
     Indication: VITAMIN SUPPLEMENTATION
     Dosage: 10000 IU, DAILY
     Route: 048
     Dates: start: 2016
  6. XELJANZ XR [Suspect]
     Active Substance: TOFACITINIB CITRATE
     Dosage: 11 MG, DAILY
     Route: 048
     Dates: start: 2018, end: 2018
  7. VITAMIN B12 [Concomitant]
     Active Substance: CYANOCOBALAMIN
     Indication: VITAMIN B12 DECREASED
  8. PREDNISONE. [Concomitant]
     Active Substance: PREDNISONE
     Indication: INFLAMMATION
     Dosage: UNK
     Dates: end: 20180212
  9. METHOTREXATE. [Concomitant]
     Active Substance: METHOTREXATE
     Indication: RHEUMATOID ARTHRITIS
     Dosage: 2.5 MG, WEEKLY
     Dates: end: 201802
  10. XELJANZ XR [Suspect]
     Active Substance: TOFACITINIB CITRATE
     Indication: RHEUMATOID ARTHRITIS
     Dosage: 11 MG, DAILY
     Route: 048
     Dates: end: 20180226
  11. VITAMINS D3 [Concomitant]
     Indication: VITAMIN D DECREASED

REACTIONS (1)
  - Drug effect incomplete [Unknown]
